FAERS Safety Report 16130278 (Version 4)
Quarter: 2020Q1

REPORT INFORMATION
  Report Type: Spontaneous
  Country: US (occurrence: US)
  Receive Date: 20190328
  Receipt Date: 20200204
  Transmission Date: 20200409
  Serious: Yes (Hospitalization)
  Sender: FDA-Public Use
  Company Number: US-PFIZER INC-2019133638

PATIENT
  Age: 62 Year
  Sex: Female
  Weight: 72.57 kg

DRUGS (2)
  1. IBRANCE [Suspect]
     Active Substance: PALBOCICLIB
     Indication: BREAST CANCER METASTATIC
     Dosage: 125 MG, CYCLIC (21 DAYS THEN OFF 7 DAYS)
     Route: 048
     Dates: start: 201808
  2. LETROZOLE. [Suspect]
     Active Substance: LETROZOLE
     Indication: BREAST CANCER METASTATIC
     Dosage: 1 DF, 1X/DAY (1 TABLET ONCE A DAY)
     Route: 048

REACTIONS (4)
  - Tumour marker increased [Unknown]
  - Upper limb fracture [Recovering/Resolving]
  - Fall [Recovering/Resolving]
  - Alopecia [Recovering/Resolving]

NARRATIVE: CASE EVENT DATE: 201808
